FAERS Safety Report 9934633 (Version 1)
Quarter: 2014Q1

REPORT INFORMATION
  Report Type: Spontaneous
  Country: US (occurrence: US)
  Receive Date: 20140228
  Receipt Date: 20140228
  Transmission Date: 20141002
  Serious: No
  Sender: FDA-Public Use
  Company Number: US-ASTRAZENECA-2013SE87287

PATIENT
  Age: 67 Year
  Sex: Female
  Weight: 38.6 kg

DRUGS (10)
  1. METOPROLOL SUCCINATE [Suspect]
     Indication: BLOOD PRESSURE ABNORMAL
     Dosage: WATSON-NON AZ
     Route: 048
     Dates: start: 201206, end: 201210
  2. METOPROLOL SUCCINATE [Suspect]
     Indication: HEART RATE ABNORMAL
     Dosage: WATSON-NON AZ
     Route: 048
     Dates: start: 201206, end: 201210
  3. METOPROLOL SUCCINATE [Suspect]
     Indication: ATRIAL FIBRILLATION
     Dosage: WATSON-NON AZ
     Route: 048
     Dates: start: 201206, end: 201210
  4. METOPROLOL SUCCINATE [Suspect]
     Indication: BLOOD PRESSURE ABNORMAL
     Route: 048
     Dates: start: 201210
  5. METOPROLOL SUCCINATE [Suspect]
     Indication: HEART RATE ABNORMAL
     Route: 048
     Dates: start: 201210
  6. METOPROLOL SUCCINATE [Suspect]
     Indication: ATRIAL FIBRILLATION
     Route: 048
     Dates: start: 201210
  7. ASPIRIN [Concomitant]
     Dosage: 81 MGS DAILY
     Route: 048
  8. MIRPAZAPINE [Concomitant]
     Indication: ANTIDEPRESSANT THERAPY
     Dosage: 30 MGS DAILY
     Route: 048
  9. FISH OIL [Concomitant]
     Indication: SUPPLEMENTATION THERAPY
     Dosage: UNKNOWN DAILY
     Route: 048
  10. MULTIVITAMINS [Concomitant]
     Indication: SUPPLEMENTATION THERAPY
     Dosage: UNKNOWN DAILY
     Route: 048

REACTIONS (6)
  - Cognitive disorder [Unknown]
  - Depression [Unknown]
  - Amnesia [Unknown]
  - Insomnia [Unknown]
  - Anxiety [Unknown]
  - Insomnia [Unknown]
